FAERS Safety Report 6369155-6 (Version None)
Quarter: 2009Q3

REPORT INFORMATION
  Report Type: 
  Country: None (occurrence: None)
  Receive Date: 20090922
  Receipt Date: 20090914
  Transmission Date: 20100115
  Serious: Yes (Hospitalization)
  Sender: FDA-Public Use
  Company Number: PHHO2009CH10665

PATIENT
  Sex: Male

DRUGS (4)
  1. MYFORTIC [Suspect]
     Indication: RENAL TRANSPLANT
     Dosage: OPEN LABEL
     Route: 048
     Dates: start: 20090705
  2. SANDIMMUNE [Suspect]
     Indication: RENAL TRANSPLANT
     Dosage: OPEN LABEL
     Route: 048
     Dates: start: 20090705
  3. NO TREATMENT RECEIVED NOMED [Suspect]
  4. STEROIDS NOS [Suspect]
     Indication: RENAL TRANSPLANT
     Dosage: OPEN LABEL
     Route: 048
     Dates: start: 20090705

REACTIONS (2)
  - DIABETES MELLITUS [None]
  - DRUG LEVEL DECREASED [None]
